FAERS Safety Report 5633045-4 (Version None)
Quarter: 2008Q1

REPORT INFORMATION
  Report Type: 
  Country: None (occurrence: None)
  Receive Date: 20080214
  Receipt Date: 20080130
  Transmission Date: 20080703
  Serious: Yes (Hospitalization)
  Sender: FDA-Public Use
  Company Number: 2008010188

PATIENT
  Age: 70 Year
  Sex: Male

DRUGS (6)
  1. DALTEPARIN SODIUM [Suspect]
     Indication: PULMONARY EMBOLISM
     Dosage: (15000 I.U.), SUBCUTANEOUS
     Route: 058
     Dates: start: 20071012, end: 20071024
  2. FLUCONAZOLE [Concomitant]
  3. HALOPERIDOL [Concomitant]
  4. ACETAMINOPHEN [Concomitant]
  5. SALBUTAMOL (SALBUTAMOL) [Concomitant]
  6. PIPERACILLIN SODIUM AND TAZOBACTAM SODIUM [Concomitant]

REACTIONS (3)
  - CELLULITIS GANGRENOUS [None]
  - INJECTION SITE CELLULITIS [None]
  - THROMBOCYTOPENIA [None]
